FAERS Safety Report 8187476-1 (Version None)
Quarter: 2012Q1

REPORT INFORMATION
  Report Type: 
  Country: None (occurrence: None)
  Receive Date: 20120306
  Receipt Date: 20120221
  Transmission Date: 20120608
  Serious: Yes (Other)
  Sender: FDA-Public Use
  Company Number: US-ROCHE-1042273

PATIENT
  Age: 60 Year
  Sex: Male

DRUGS (1)
  1. ZELBORAF [Suspect]
     Indication: BASAL CELL CARCINOMA
     Dates: end: 20120116

REACTIONS (3)
  - DISEASE PROGRESSION [None]
  - DRUG INEFFECTIVE [None]
  - QUALITY OF LIFE DECREASED [None]
